FAERS Safety Report 21328503 (Version 1)
Quarter: 2022Q3

REPORT INFORMATION
  Report Type: Spontaneous
  Country: US (occurrence: US)
  Receive Date: 20220913
  Receipt Date: 20220913
  Transmission Date: 20221027
  Serious: Yes (Hospitalization)
  Sender: FDA-Public Use
  Company Number: US-MYLANLABS-2022M1092787

PATIENT
  Age: 53 Year
  Sex: Female

DRUGS (2)
  1. ACARBOSE [Suspect]
     Active Substance: ACARBOSE
     Indication: Postprandial hypoglycaemia
     Dosage: UNK
     Route: 065
  2. ACARBOSE [Suspect]
     Active Substance: ACARBOSE
     Indication: Postprandial hypoglycaemia

REACTIONS (2)
  - Drug ineffective for unapproved indication [Unknown]
  - Off label use [Unknown]
